FAERS Safety Report 10761995 (Version 1)
Quarter: 2015Q1

REPORT INFORMATION
  Report Type: Spontaneous
  Country: US (occurrence: None)
  Receive Date: 20150129
  Receipt Date: 20150129
  Transmission Date: 20150721
  Serious: Yes (Other)
  Sender: FDA-Public Use
  Company Number: 096673

PATIENT
  Sex: Male
  Weight: 90.7 kg

DRUGS (4)
  1. GENERIC KEPPRA (LEVETIRACETAM) [Concomitant]
  2. DILANTIN (PHENYTOIN) CAPSULE [Concomitant]
     Dates: start: 2011, end: 20130606
  3. KEPPRA [Suspect]
     Active Substance: LEVETIRACETAM
     Indication: GENERALISED TONIC-CLONIC SEIZURE
  4. VIMPAT [Suspect]
     Active Substance: LACOSAMIDE
     Indication: SEIZURE
     Dosage: FOR 18 MONTHS
     Dates: start: 2011

REACTIONS (5)
  - Petit mal epilepsy [None]
  - Loss of consciousness [None]
  - Psychogenic seizure [None]
  - Seizure [None]
  - Generalised tonic-clonic seizure [None]

NARRATIVE: CASE EVENT DATE: 2011
